FAERS Safety Report 16018397 (Version 1)
Quarter: 2019Q1

REPORT INFORMATION
  Report Type: Spontaneous
  Country: US (occurrence: US)
  Receive Date: 20190201
  Receipt Date: 20190201
  Transmission Date: 20190418
  Serious: Yes (Life-Threatening, Hospitalization)
  Sender: FDA-Public Use
  Company Number: None

PATIENT
  Age: 14 Year
  Sex: Female
  Weight: 50.8 kg

DRUGS (26)
  1. CEFAZOLIN [Suspect]
     Active Substance: CEFAZOLIN
     Indication: SEDATION
     Route: 042
     Dates: end: 20180802
  2. OXYCODONE [Concomitant]
     Active Substance: OXYCODONE
  3. SUGAMMADEX (BRIDION) [Concomitant]
  4. MULTI-VITAMINS [Concomitant]
  5. ZOFRAN [Concomitant]
     Active Substance: ONDANSETRON HYDROCHLORIDE
  6. LIDOCAINE. [Suspect]
     Active Substance: LIDOCAINE
     Dosage: ?          OTHER ROUTE:IV PUSH, SYRING?
     Route: 042
     Dates: end: 20180802
  7. ACETAMINOPHEN. [Concomitant]
     Active Substance: ACETAMINOPHEN
  8. POTASSIUM CHLORIDE. [Concomitant]
     Active Substance: POTASSIUM CHLORIDE
  9. LIDOCAINE. [Concomitant]
     Active Substance: LIDOCAINE
  10. DEXAMETHASONE. [Suspect]
     Active Substance: DEXAMETHASONE
     Dosage: ?          OTHER ROUTE:IV PUSH?
     Route: 042
     Dates: end: 20180802
  11. ROCURONIUM [Suspect]
     Active Substance: ROCURONIUM BROMIDE
     Dosage: ?          OTHER ROUTE:IV PUSH?
     Route: 042
     Dates: end: 20180802
  12. ATIVAN [Concomitant]
     Active Substance: LORAZEPAM
  13. METOCLOPRAMIDE. [Concomitant]
     Active Substance: METOCLOPRAMIDE
  14. SODIUM PHOSPHATE [Concomitant]
     Active Substance: SODIUM PHOSPHATE
  15. HYDROMORPHINE (DILAUDID) [Concomitant]
  16. FENTANYL. [Suspect]
     Active Substance: FENTANYL
     Dosage: ?          OTHER ROUTE:IV PUSH?
     Route: 042
     Dates: end: 20180802
  17. ONDANSETRON [Suspect]
     Active Substance: ONDANSETRON
     Dosage: ?          OTHER ROUTE:IV PUSH?
     Route: 042
     Dates: end: 20180802
  18. DEXTROSE. [Concomitant]
     Active Substance: DEXTROSE
  19. LACTATED RINGERS SOLUTION [Concomitant]
     Active Substance: CALCIUM CHLORIDE\POTASSIUM CHLORIDE\SODIUM CHLORIDE\SODIUM LACTATE
  20. POTASSIUM PHOSPHATE-SODIUM PHOSPHATE [Concomitant]
  21. BROMPHENIRAMINE-PHENYLEPHRINE [Concomitant]
  22. PROPOFOL. [Suspect]
     Active Substance: PROPOFOL
     Dosage: ?          OTHER ROUTE:IV PUSH?
     Route: 042
     Dates: end: 20180802
  23. SODIUM CHLORIDE. [Concomitant]
     Active Substance: SODIUM CHLORIDE
  24. MAGNESIUM SULFATE. [Concomitant]
     Active Substance: MAGNESIUM SULFATE
  25. MIDAZOLAM [Suspect]
     Active Substance: MIDAZOLAM HYDROCHLORIDE
     Dosage: ?          OTHER ROUTE:IV PUSH?
     Route: 042
     Dates: end: 20180802
  26. CLINDAMYCIN. [Concomitant]
     Active Substance: CLINDAMYCIN

REACTIONS (3)
  - Chest discomfort [None]
  - Palpitations [None]
  - Muscle spasms [None]

NARRATIVE: CASE EVENT DATE: 20180208
